FAERS Safety Report 8181541-0 (Version None)
Quarter: 2012Q1

REPORT INFORMATION
  Report Type: 
  Country: None (occurrence: None)
  Receive Date: 20120126
  Receipt Date: 20111219
  Transmission Date: 20120608
  Serious: No
  Sender: FDA-Public Use
  Company Number: PHEH2011US009992

PATIENT
  Age: 2 Year
  Sex: Female
  Weight: 35 kg

DRUGS (5)
  1. VIGABATRIN (VIGABATRIN) [Concomitant]
  2. KLONOPIN [Concomitant]
  3. DIASTAT [Concomitant]
  4. AFINITOR [Suspect]
     Indication: ASTROCYTOMA MALIGNANT
     Dosage: 2.5MG, DAILY, ORAL
     Route: 048
     Dates: start: 20111109
  5. TRAZODONE HCL [Concomitant]

REACTIONS (3)
  - IRRITABILITY [None]
  - PHARYNGITIS STREPTOCOCCAL [None]
  - NASOPHARYNGITIS [None]
